FAERS Safety Report 10364865 (Version 2)
Quarter: 2014Q3

REPORT INFORMATION
  Report Type: Report from Study
  Country: KR (occurrence: KR)
  Receive Date: 20140806
  Receipt Date: 20140902
  Transmission Date: 20150326
  Serious: Yes (Hospitalization)
  Sender: FDA-Public Use
  Company Number: KR-OTSUKA-JP-2014-15839

PATIENT

DRUGS (15)
  1. GRANDPAZE S [Concomitant]
     Indication: PROPHYLAXIS
     Dosage: 2 DF DOSAGE FORM, DAILY DOSE
     Route: 048
     Dates: start: 20140703
  2. DIABEX [Concomitant]
     Active Substance: METFORMIN HYDROCHLORIDE
     Indication: HYPONATRAEMIA
     Dosage: 2 DF DOSAGE FORM, DAILY DOSE
     Route: 048
     Dates: start: 20140704
  3. MYAMBUTOL [Concomitant]
     Active Substance: ETHAMBUTOL HYDROCHLORIDE
     Indication: HYPONATRAEMIA
     Dosage: 2 DF DOSAGE FORM, DAILY DOSE
     Route: 048
     Dates: start: 20140708
  4. PYRIDOXINE [Concomitant]
     Active Substance: PYRIDOXINE
     Indication: HYPONATRAEMIA
     Dosage: 1 DF DOSAGE FORM, DAILY DOSE
     Route: 048
     Dates: start: 20140708
  5. SAMSCA [Suspect]
     Active Substance: TOLVAPTAN
     Indication: HYPONATRAEMIA
     Dosage: 15 MG MILLIGRAM(S), QD
     Route: 048
     Dates: start: 20140713, end: 20140718
  6. LANSTON [Concomitant]
     Active Substance: LANSOPRAZOLE
     Indication: PROPHYLAXIS
     Dosage: 1 DF DOSAGE FORM, DAILY DOSE
     Route: 048
     Dates: start: 20140709
  7. YUHANZID [Concomitant]
     Active Substance: ISONIAZID
     Indication: HYPONATRAEMIA
     Dosage: 3 DF DOSAGE FORM, DAILY DOSE
     Route: 048
     Dates: start: 20140708
  8. RIFODEX [Concomitant]
     Indication: HYPONATRAEMIA
     Dosage: 3 DF DOSAGE FORM, DAILY DOSE
     Route: 048
     Dates: start: 20140708
  9. PREDNISOLONE. [Concomitant]
     Active Substance: PREDNISOLONE
     Indication: HYPONATRAEMIA
     Dosage: 8 DF DOSAGE FORM, DAILY DOSE
     Route: 048
     Dates: start: 20140708
  10. CRESTOR [Concomitant]
     Active Substance: ROSUVASTATIN CALCIUM
     Indication: HYPONATRAEMIA
     Dosage: 1 DF DOSAGE FORM, DAILY DOSE
     Route: 048
     Dates: start: 20140703
  11. SAMSCA [Suspect]
     Active Substance: TOLVAPTAN
     Dosage: 15MG MILLIGRAM(S), UNK
     Route: 048
     Dates: start: 20140721, end: 20140804
  12. GANATON [Concomitant]
     Active Substance: ITOPRIDE
     Indication: PROPHYLAXIS
     Dosage: 2 DF DOSAGE FORM, DAILY DOSE
     Route: 048
     Dates: start: 20140705
  13. NORVASC [Concomitant]
     Active Substance: AMLODIPINE BESYLATE
     Indication: HYPONATRAEMIA
     Dosage: 1 DF DOSAGE FORM, DAILY DOSE
     Route: 048
     Dates: start: 20140703
  14. ASPIRIN. [Concomitant]
     Active Substance: ASPIRIN
     Indication: HYPONATRAEMIA
     Dosage: 1 DF DOSAGE FORM, DAILY DOSE
     Route: 048
     Dates: start: 20140703
  15. PYRAZINAMIDE. [Concomitant]
     Active Substance: PYRAZINAMIDE
     Indication: HYPONATRAEMIA
     Dosage: 2 DF DOSAGE FORM, DAILY DOSE
     Route: 048
     Dates: start: 20140708

REACTIONS (4)
  - Pyelonephritis [Recovering/Resolving]
  - Pneumonia [Recovered/Resolved]
  - Blood creatinine increased [Recovering/Resolving]
  - Blood urea increased [Recovering/Resolving]

NARRATIVE: CASE EVENT DATE: 20140714
